FAERS Safety Report 24777725 (Version 1)
Quarter: 2024Q4

REPORT INFORMATION
  Report Type: Spontaneous
  Country: AU (occurrence: AU)
  Receive Date: 20241226
  Receipt Date: 20241226
  Transmission Date: 20250115
  Serious: Yes (Hospitalization, Other)
  Sender: SANDOZ
  Company Number: AU-ROCHE-10000117696

PATIENT
  Age: 58 Year
  Sex: Male
  Weight: 110.4 kg

DRUGS (32)
  1. ATEZOLIZUMAB [Suspect]
     Active Substance: ATEZOLIZUMAB
     Indication: Product used for unknown indication
     Dosage: 1200 MG, Q3W
     Route: 042
     Dates: start: 20240617
  2. ATEZOLIZUMAB [Suspect]
     Active Substance: ATEZOLIZUMAB
     Dosage: 1200 MG
     Route: 065
     Dates: start: 20241015, end: 20241015
  3. MIGOPROTAFIB [Suspect]
     Active Substance: MIGOPROTAFIB
     Indication: Localised melanoma
     Dosage: 60 MG, QD ( GDC-1971)
     Route: 048
     Dates: start: 20240617
  4. MIGOPROTAFIB [Suspect]
     Active Substance: MIGOPROTAFIB
     Dosage: 60 MG ( GDC-1971)
     Route: 065
     Dates: start: 20241023
  5. OMEPRAZOLE [Suspect]
     Active Substance: OMEPRAZOLE
     Indication: Localised melanoma
     Dosage: 40 MG, QD
     Route: 048
     Dates: start: 20240626
  6. OMEPRAZOLE [Suspect]
     Active Substance: OMEPRAZOLE
     Dosage: 40 MG (PRIOR TO AE/SAE)
     Route: 065
     Dates: start: 20240706
  7. AMOXICILLIN\CLAVULANIC ACID [Concomitant]
     Active Substance: AMOXICILLIN\CLAVULANIC ACID
     Indication: Colitis
     Route: 065
  8. AMOXICILLIN\CLAVULANIC ACID [Concomitant]
     Active Substance: AMOXICILLIN\CLAVULANIC ACID
     Indication: Colitis
     Route: 065
  9. APIXABAN [Concomitant]
     Active Substance: APIXABAN
     Indication: Tumour thrombosis
     Dosage: 5 MG, QD
     Route: 048
     Dates: start: 20240112
  10. APIXABAN [Concomitant]
     Active Substance: APIXABAN
     Dosage: 5 MG, QD
     Route: 048
  11. AZITHROMYCIN [Concomitant]
     Active Substance: AZITHROMYCIN
     Indication: Colitis
     Dosage: 500 MG, QD
     Route: 042
     Dates: start: 20241031, end: 20241101
  12. CEFEPIME [Concomitant]
     Active Substance: CEFEPIME HYDROCHLORIDE
     Indication: Product used for unknown indication
     Dosage: UNK
     Route: 065
  13. CEFTRIAXONE [Concomitant]
     Active Substance: CEFTRIAXONE
     Indication: Colitis
     Dosage: 2 G, QD
     Route: 042
     Dates: start: 20241029, end: 20241101
  14. CLINDAMYCIN [Concomitant]
     Active Substance: CLINDAMYCIN
     Indication: Colitis
     Dosage: 600 MG
     Route: 042
     Dates: start: 20241031, end: 20241101
  15. DAPTOMYCIN [Concomitant]
     Active Substance: DAPTOMYCIN
     Indication: Colitis
     Dosage: 500 MG, QD
     Route: 042
     Dates: start: 20241105, end: 20241108
  16. DOMPERIDONE [Concomitant]
     Active Substance: DOMPERIDONE
     Indication: Colitis
     Dosage: 10 MG
     Route: 048
     Dates: start: 20241106, end: 20241108
  17. ENOXAPARIN [Concomitant]
     Active Substance: ENOXAPARIN
     Indication: Product used for unknown indication
     Dosage: UNK
     Route: 065
  18. FLUTICASONE PROPIONATE\SALMETEROL XINAFOATE [Concomitant]
     Active Substance: FLUTICASONE PROPIONATE\SALMETEROL XINAFOATE
     Indication: Asthma
     Dosage: UNK (1 AS NECESSARY)
     Route: 065
     Dates: start: 201912
  19. FUROSEMIDE [Concomitant]
     Active Substance: FUROSEMIDE
     Indication: Oedema peripheral
     Dosage: 40 MG, QD
     Route: 048
     Dates: start: 20240731
  20. LACTULOSE [Concomitant]
     Active Substance: LACTULOSE
     Indication: Colitis
     Dosage: 20 ML
     Route: 048
     Dates: start: 20241029
  21. LIDOCAINE HYDROCHLORIDE [Concomitant]
     Active Substance: LIDOCAINE HYDROCHLORIDE
     Indication: Colitis
     Dosage: 700 MG, QD
     Route: 061
     Dates: start: 20241105, end: 20241105
  22. NALOXONE HYDROCHLORIDE\OXYCODONE HYDROCHLORIDE [Concomitant]
     Active Substance: NALOXONE HYDROCHLORIDE\OXYCODONE HYDROCHLORIDE
     Indication: Product used for unknown indication
     Dosage: UNK
     Route: 065
  23. NALOXONE HYDROCHLORIDE\OXYCODONE HYDROCHLORIDE [Concomitant]
     Active Substance: NALOXONE HYDROCHLORIDE\OXYCODONE HYDROCHLORIDE
     Indication: Product used for unknown indication
     Dosage: UNK
     Route: 065
  24. NALOXONE HYDROCHLORIDE\OXYCODONE HYDROCHLORIDE [Concomitant]
     Active Substance: NALOXONE HYDROCHLORIDE\OXYCODONE HYDROCHLORIDE
     Indication: Product used for unknown indication
     Dosage: UNK
     Route: 065
  25. OXYCODONE [Concomitant]
     Active Substance: OXYCODONE
     Indication: Back pain
     Dosage: 10 MG (1 AS NECESSARY)
     Route: 048
     Dates: start: 20241109
  26. OXYCODONE [Concomitant]
     Active Substance: OXYCODONE
     Dosage: 15 MG, QD
     Route: 065
     Dates: start: 20241109
  27. OXYCODONE [Concomitant]
     Active Substance: OXYCODONE
     Indication: Acute kidney injury
     Dosage: 5 MG
     Route: 048
     Dates: start: 20241004, end: 20241108
  28. PANTOPRAZOLE [Concomitant]
     Active Substance: PANTOPRAZOLE
     Indication: Product used for unknown indication
     Dosage: UNK
     Route: 065
  29. ALBUTEROL [Concomitant]
     Active Substance: ALBUTEROL
     Indication: Localised melanoma
     Dosage: UNK
     Route: 065
  30. TAPENTADOL [Concomitant]
     Active Substance: TAPENTADOL
     Indication: Back pain
     Dosage: 50 MG
     Route: 048
     Dates: start: 20241028, end: 20241028
  31. PIPERACILLIN SODIUM\TAZOBACTAM SODIUM [Concomitant]
     Active Substance: PIPERACILLIN SODIUM\TAZOBACTAM SODIUM
     Indication: Colitis
     Dosage: 4.5 MG
     Route: 042
     Dates: start: 20241025, end: 20241028
  32. VANCOMYCIN [Concomitant]
     Active Substance: VANCOMYCIN
     Indication: Colitis
     Dosage: 1 G, QD
     Route: 042
     Dates: start: 20241026, end: 20241026

REACTIONS (1)
  - Immune-mediated nephritis [Recovered/Resolved]

NARRATIVE: CASE EVENT DATE: 20241025
